FAERS Safety Report 17566557 (Version 6)
Quarter: 2020Q2

REPORT INFORMATION
  Report Type: Report from Study
  Country: FR (occurrence: FR)
  Receive Date: 20200320
  Receipt Date: 20200413
  Transmission Date: 20200713
  Serious: Yes (Hospitalization)
  Sender: FDA-Public Use
  Company Number: FR-ROCHE-2434880

PATIENT
  Age: 57 Year
  Sex: Male
  Weight: 54 kg

DRUGS (50)
  1. METOJECT [Concomitant]
     Active Substance: METHOTREXATE SODIUM
     Dosage: ON MONDAYS THEN 20 MG THE NEXT WEEK TO BE CONTINUED
     Route: 065
  2. DIPROLENE [Concomitant]
     Active Substance: BETAMETHASONE DIPROPIONATE
     Indication: PRURITUS
     Route: 065
     Dates: start: 20190125
  3. ISPAGHUL [Concomitant]
     Indication: CONSTIPATION
     Route: 065
     Dates: start: 20170712
  4. METHOTREXATE. [Concomitant]
     Active Substance: METHOTREXATE
     Route: 065
     Dates: start: 20190909, end: 20190909
  5. PREVENAR [Concomitant]
     Active Substance: PNEUMOCOCCAL 7-VALENT CONJUGATE VACCINE (DIPHTHERIA CRM197 PROTEIN)
     Indication: PROPHYLAXIS
     Route: 065
     Dates: start: 20190909, end: 20190909
  6. METHYLPREDNISOLONE. [Concomitant]
     Active Substance: METHYLPREDNISOLONE
     Indication: PREMEDICATION
     Dosage: SUBSEQUENT DOSES ON 04/JUL/2012, 05/DEC/2012, 21/DEC/2012, 22/MAY/2013, 05/JUN/2013, 06/NOV/2013, 20
     Route: 065
     Dates: start: 20120620
  7. TOVIAZ [Concomitant]
     Active Substance: FESOTERODINE FUMARATE
     Route: 065
     Dates: start: 20180303
  8. OCRELIZUMAB. [Suspect]
     Active Substance: OCRELIZUMAB
     Route: 042
     Dates: start: 20171227
  9. DIPROLENE [Concomitant]
     Active Substance: BETAMETHASONE DIPROPIONATE
     Dosage: 1 APPLICATION DAILY, THEN SWITCH TO AN EMOLLIENT 1 APPLICATION DAILY
     Route: 065
  10. DIPROLENE [Concomitant]
     Active Substance: BETAMETHASONE DIPROPIONATE
     Route: 065
     Dates: start: 20151002
  11. DTP VACCINE [Concomitant]
     Indication: PROPHYLAXIS
     Route: 065
     Dates: start: 20190904, end: 20190904
  12. GLYCEROL [Concomitant]
     Active Substance: GLYCERIN
     Indication: PRURITUS ALLERGIC
     Route: 065
     Dates: start: 20150914
  13. MYCOSTER [CICLOPIROX] [Concomitant]
     Indication: PRURITUS
     Route: 065
     Dates: start: 20190129
  14. OCRELIZUMAB. [Suspect]
     Active Substance: OCRELIZUMAB
     Indication: PRIMARY PROGRESSIVE MULTIPLE SCLEROSIS
     Route: 042
     Dates: start: 20160224
  15. OCRELIZUMAB. [Suspect]
     Active Substance: OCRELIZUMAB
     Route: 042
     Dates: start: 20190515
  16. ATORVASTATINE [ATORVASTATIN] [Concomitant]
     Active Substance: ATORVASTATIN
     Indication: HYPERCHOLESTEROLAEMIA
     Route: 065
     Dates: start: 20160224
  17. DIPROLENE [Concomitant]
     Active Substance: BETAMETHASONE DIPROPIONATE
     Indication: PRURITUS ALLERGIC
     Route: 065
     Dates: start: 20140318, end: 20140323
  18. METHOTREXATE. [Concomitant]
     Active Substance: METHOTREXATE
     Indication: PRURITUS
     Route: 065
     Dates: start: 20190903, end: 20190903
  19. OCRELIZUMAB. [Suspect]
     Active Substance: OCRELIZUMAB
     Route: 042
     Dates: start: 20170124
  20. TOVIAZ [Concomitant]
     Active Substance: FESOTERODINE FUMARATE
     Route: 065
  21. CERAT DE GALIEN [Concomitant]
     Indication: PRURITUS ALLERGIC
     Route: 065
     Dates: start: 20140318, end: 20140703
  22. SPECIAFOLDINE [Concomitant]
     Active Substance: FOLIC ACID
     Dosage: 2 TABS EVERY WEDNESDAY
     Route: 065
  23. LYRICA [Concomitant]
     Active Substance: PREGABALIN
     Indication: NEURALGIA
     Route: 065
     Dates: start: 20151002, end: 20171227
  24. TAHOR [Concomitant]
     Active Substance: ATORVASTATIN CALCIUM
     Indication: HYPERCHOLESTEROLAEMIA
     Route: 065
     Dates: start: 2008, end: 20151210
  25. UVEDOSE [Concomitant]
     Active Substance: CHOLECALCIFEROL
     Indication: VITAMIN D DEFICIENCY
     Route: 065
     Dates: start: 20161206
  26. UVEDOSE [Concomitant]
     Active Substance: CHOLECALCIFEROL
     Route: 065
     Dates: start: 20150528, end: 20150623
  27. OCRELIZUMAB. [Suspect]
     Active Substance: OCRELIZUMAB
     Route: 042
     Dates: start: 20180613
  28. TAHOR [Concomitant]
     Active Substance: ATORVASTATIN CALCIUM
     Route: 065
  29. PNEUMO 23 [Concomitant]
     Active Substance: PNEUMOCOCCAL VACCINE, POLYVALENT 23
  30. CLARELUX [Concomitant]
     Active Substance: CLOBETASOL PROPIONATE
     Indication: PRURITUS ALLERGIC
     Route: 065
     Dates: start: 20150210, end: 20150913
  31. DIPROLENE [Concomitant]
     Active Substance: BETAMETHASONE DIPROPIONATE
     Route: 065
     Dates: start: 20150914, end: 20151001
  32. GUTRON [Concomitant]
     Active Substance: MIDODRINE
     Indication: ORTHOSTATIC HYPOTENSION
     Route: 065
     Dates: start: 20180517
  33. METOPIMAZINE [Concomitant]
     Active Substance: METOPIMAZINE
     Route: 065
     Dates: start: 20191212, end: 20191216
  34. OCRELIZUMAB. [Suspect]
     Active Substance: OCRELIZUMAB
     Route: 042
     Dates: start: 20160810
  35. OCRELIZUMAB. [Suspect]
     Active Substance: OCRELIZUMAB
     Route: 042
     Dates: start: 20170712
  36. OCRELIZUMAB. [Suspect]
     Active Substance: OCRELIZUMAB
     Indication: PRIMARY PROGRESSIVE MULTIPLE SCLEROSIS
     Route: 042
     Dates: start: 20120620, end: 20160223
  37. GUTRON [Concomitant]
     Active Substance: MIDODRINE
     Route: 065
  38. VESICARE [Concomitant]
     Active Substance: SOLIFENACIN SUCCINATE
     Route: 065
  39. PERFALGAN [Concomitant]
     Active Substance: ACETAMINOPHEN
     Indication: PREMEDICATION
     Dosage: SUBSEQUENT DOSES ON 04/JUL/2012, 05/DEC/2012, 21/DEC/2012, 22/MAY/2013, 05/JUN/2013, 06/NOV/2013, 20
     Route: 065
     Dates: start: 20120620
  40. POLARAMINE [Concomitant]
     Active Substance: DEXCHLORPHENIRAMINE MALEATE
     Indication: PREMEDICATION
     Dosage: SUBSEQUENT DOSES ON 04/JUL/2012, 05/DEC/2012, 21/DEC/2012, 22/MAY/2013, 05/JUN/2013, 06/NOV/2013, 20
     Route: 065
     Dates: start: 20120620
  41. CERAT DE GALIEN [Concomitant]
     Indication: PRURITUS
     Route: 065
     Dates: start: 20190129
  42. EDUCTYL [Concomitant]
     Active Substance: POTASSIUM BITARTRATE\SODIUM BICARBONATE
     Indication: CONSTIPATION
     Dosage: 1 UNIT
     Route: 065
     Dates: start: 20170712
  43. METHOTREXATE. [Concomitant]
     Active Substance: METHOTREXATE
     Route: 065
     Dates: start: 20190916
  44. METHOTREXATE. [Concomitant]
     Active Substance: METHOTREXATE
     Route: 065
     Dates: start: 20191209
  45. SPECIAFOLDINE [Concomitant]
     Active Substance: FOLIC ACID
     Indication: PRURITUS
     Route: 065
     Dates: start: 20190911
  46. TAHOR [Concomitant]
     Active Substance: ATORVASTATIN CALCIUM
     Route: 065
     Dates: start: 20171230
  47. TOVIAZ [Concomitant]
     Active Substance: FESOTERODINE FUMARATE
     Indication: BLADDER DISORDER
     Route: 065
     Dates: start: 20160127, end: 20161219
  48. TRAMADOL. [Concomitant]
     Active Substance: TRAMADOL
     Route: 065
     Dates: start: 20191212, end: 20191216
  49. UVEDOSE [Concomitant]
     Active Substance: CHOLECALCIFEROL
     Route: 065
     Dates: start: 20131106, end: 20150527
  50. UVEDOSE [Concomitant]
     Active Substance: CHOLECALCIFEROL
     Route: 065
     Dates: start: 20150624, end: 20161206

REACTIONS (2)
  - Lymphadenopathy [Recovered/Resolved]
  - Pruritus [Recovered/Resolved]

NARRATIVE: CASE EVENT DATE: 20190902
